FAERS Safety Report 5987156-4 (Version None)
Quarter: 2008Q4

REPORT INFORMATION
  Report Type: 
  Country: None (occurrence: None)
  Receive Date: 20081209
  Receipt Date: 20081201
  Transmission Date: 20090506
  Serious: Yes (Other)
  Sender: FDA-Public Use
  Company Number: US-PFIZER INC-2008101580

PATIENT

DRUGS (1)
  1. DETROL LA [Suspect]

REACTIONS (2)
  - ARTHRITIS [None]
  - MUSCULAR WEAKNESS [None]
